FAERS Safety Report 7809074-9 (Version None)
Quarter: 2011Q4

REPORT INFORMATION
  Report Type: 
  Country: None (occurrence: None)
  Receive Date: 20111012
  Receipt Date: 20111004
  Transmission Date: 20120403
  Serious: Yes (Life-Threatening, Hospitalization, Disabling)
  Sender: FDA-Public Use
  Company Number: US-ROCHE-791226

PATIENT
  Sex: Female
  Weight: 73.9 kg

DRUGS (30)
  1. FOLIC ACID [Concomitant]
  2. VICODIN [Concomitant]
  3. SKELAXIN [Concomitant]
  4. COUMADIN [Concomitant]
     Dates: start: 20070522, end: 20070526
  5. VERAPAMIL [Concomitant]
     Dates: start: 20070522, end: 20070527
  6. ACTEMRA [Suspect]
     Dosage: EACH MONTH
     Route: 042
  7. PREDNISONE [Concomitant]
     Route: 048
  8. BENICAR [Concomitant]
  9. PROTONIX [Concomitant]
  10. ZOFRAN [Concomitant]
     Dates: start: 20070526, end: 20070526
  11. BENAZEPRIL HYDROCHLORIDE [Concomitant]
  12. PERCOCET [Concomitant]
     Dosage: TAKEN: ON 31 AUGUST 2006, 350 MG. 328 MG FROM MAY 2007 TO 26 MAY 2007.
     Dates: start: 20060831, end: 20070526
  13. VERAMIL [Concomitant]
  14. NEURONTIN [Concomitant]
  15. IRON DEXTRAN [Concomitant]
     Dates: start: 20110705, end: 20110705
  16. PREDNISONE [Concomitant]
     Route: 048
  17. IRON [Concomitant]
  18. TYLENOL-500 [Concomitant]
     Dates: start: 20070524, end: 20070526
  19. ANCEF [Concomitant]
     Dates: start: 20070522, end: 20070523
  20. ACTONEL [Concomitant]
     Dosage: TDD: 150 MG QMO
  21. ACTEMRA [Suspect]
     Indication: RHEUMATOID ARTHRITIS
     Route: 042
  22. FOLIC ACID [Concomitant]
  23. PROTONIX [Concomitant]
  24. PREDNISONE [Concomitant]
     Route: 048
  25. TORADOL [Concomitant]
     Dosage: DOSE: 60 MG/2ML
     Dates: start: 20070522, end: 20070527
  26. ACTEMRA [Suspect]
     Dosage: FREQUENCY: QMONTH
     Route: 042
  27. BENADRYL [Concomitant]
     Dates: start: 20070524, end: 20070524
  28. DIGOXIN INJECTABLE [Concomitant]
     Dosage: 0.25 MG/ML
     Dates: start: 20070523, end: 20070523
  29. IBUPROFEN [Concomitant]
  30. VICODIN [Concomitant]

REACTIONS (1)
  - ABDOMINAL PAIN [None]
